FAERS Safety Report 18741192 (Version 7)
Quarter: 2021Q2

REPORT INFORMATION
  Report Type: Spontaneous
  Country: JP (occurrence: JP)
  Receive Date: 20210114
  Receipt Date: 20210614
  Transmission Date: 20210717
  Serious: Yes (Life-Threatening, Hospitalization, Other)
  Sender: FDA-Public Use
  Company Number: JP-GLAXOSMITHKLINE-JP2020248881

PATIENT
  Age: 54 Year
  Sex: Female
  Weight: 35 kg

DRUGS (4)
  1. ZEJULA [Suspect]
     Active Substance: NIRAPARIB
     Dosage: 200 MILLIGRAM, QD
     Route: 048
     Dates: start: 20201116, end: 20201204
  2. ZEJULA [Suspect]
     Active Substance: NIRAPARIB
     Indication: OVARIAN CANCER STAGE III
     Dosage: 200 MILLIGRAM, QD
     Route: 048
     Dates: start: 20201030, end: 20201105
  3. METOCLOPRAMIDE. [Concomitant]
     Active Substance: METOCLOPRAMIDE
     Indication: PROPHYLAXIS OF NAUSEA AND VOMITING
     Dosage: 5 MILLIGRAM, QD
     Route: 048
     Dates: start: 20201102
  4. ZEJULA [Suspect]
     Active Substance: NIRAPARIB
     Dosage: 200 MILLIGRAM, QD
     Route: 048
     Dates: start: 20210126, end: 20210214

REACTIONS (6)
  - Metastases to peritoneum [Unknown]
  - Pancytopenia [Recovered/Resolved]
  - Platelet count decreased [Recovered/Resolved]
  - Constipation [Recovered/Resolved]
  - Myelosuppression [Recovering/Resolving]
  - Ileus [Recovered/Resolved]

NARRATIVE: CASE EVENT DATE: 20201125
